FAERS Safety Report 11785055 (Version 1)
Quarter: 2015Q4

REPORT INFORMATION
  Report Type: Spontaneous
  Country: US (occurrence: None)
  Receive Date: 20151124
  Receipt Date: 20151124
  Transmission Date: 20160305
  Serious: Yes (Other)
  Sender: FDA-Public Use
  Company Number: US-JNJFOC-20151015015

PATIENT
  Age: 58 Year
  Sex: Male
  Weight: 97.52 kg

DRUGS (3)
  1. SPIRIVA [Concomitant]
     Active Substance: TIOTROPIUM BROMIDE MONOHYDRATE
  2. ADVAIR (SERETIDE /01420901/) [Concomitant]
  3. LISTERINE POCKETMIST [Suspect]
     Active Substance: EUCALYPTOL\MENTHOL\THYMOL
     Indication: BREATH ODOUR
     Dosage: LIBERALLY ^ALL DAY LONG^  ORAL
     Route: 048
     Dates: end: 20151018

REACTIONS (3)
  - Intentional product misuse [None]
  - Fungal infection [None]
  - Pharyngitis [None]
